FAERS Safety Report 10143584 (Version 1)
Quarter: 2014Q2

REPORT INFORMATION
  Report Type: Spontaneous
  Country: US (occurrence: None)
  Receive Date: 20140429
  Receipt Date: 20140429
  Transmission Date: 20141212
  Serious: Yes (Life-Threatening, Hospitalization)
  Sender: FDA-Public Use
  Company Number: None

PATIENT
  Age: 52 Year
  Sex: Female
  Weight: 142 kg

DRUGS (10)
  1. XARELTO [Suspect]
     Indication: KNEE ARTHROPLASTY
     Route: 048
     Dates: start: 20140412, end: 20140420
  2. DIVALPROEX [Concomitant]
  3. METOLAZONE [Concomitant]
  4. MONTELUKAST [Concomitant]
  5. ARMOUR THYROID [Concomitant]
  6. FENOFIBRATE [Concomitant]
  7. ALPRAZOLAM [Concomitant]
  8. GABAPENTIN [Concomitant]
  9. VENLAFAXIN [Concomitant]
  10. ARIPIPRAZOLE [Concomitant]

REACTIONS (2)
  - Deep vein thrombosis [None]
  - Pulmonary embolism [None]
